FAERS Safety Report 6235869-1 (Version None)
Quarter: 2009Q2

REPORT INFORMATION
  Report Type: 
  Country: None (occurrence: None)
  Receive Date: 20090617
  Receipt Date: 20090617
  Transmission Date: 20091009
  Serious: No
  Sender: FDA-Public Use
  Company Number: None

PATIENT
  Sex: Female
  Weight: 63.5 kg

DRUGS (2)
  1. TAXOL [Suspect]
     Dosage: 536 MG
     Dates: end: 20090603
  2. HERCEPTIN [Suspect]
     Dosage: 480 MG
     Dates: end: 20090603

REACTIONS (4)
  - NAIL DISORDER [None]
  - ONYCHALGIA [None]
  - ONYCHOMADESIS [None]
  - THERAPEUTIC AGENT TOXICITY [None]
